FAERS Safety Report 13956362 (Version 2)
Quarter: 2017Q4

REPORT INFORMATION
  Report Type: Spontaneous
  Country: US (occurrence: US)
  Receive Date: 20170911
  Receipt Date: 20171011
  Transmission Date: 20180320
  Serious: Yes (Life-Threatening, Hospitalization)
  Sender: FDA-Public Use
  Company Number: US-BTG INTERNATIONAL LTD-2017BTG01355

PATIENT
  Age: 51 Year
  Sex: Male

DRUGS (2)
  1. CROFAB [Suspect]
     Active Substance: CROTALIDAE POLYVALENT IMMUNE FAB (OVINE)
     Indication: SNAKE BITE
     Dosage: 8 VIALS, SINGLE
     Route: 065
  2. CROFAB [Suspect]
     Active Substance: CROTALIDAE POLYVALENT IMMUNE FAB (OVINE)
     Dosage: 12 VIALS, SINGLE
     Route: 065

REACTIONS (6)
  - Shock [Unknown]
  - Sepsis [Unknown]
  - Clostridium difficile colitis [Unknown]
  - Pulmonary embolism [Unknown]
  - Renal failure [Unknown]
  - Intestinal ischaemia [Unknown]
